FAERS Safety Report 16474301 (Version 1)
Quarter: 2019Q2

REPORT INFORMATION
  Report Type: Spontaneous
  Country: US (occurrence: US)
  Receive Date: 20190625
  Receipt Date: 20190625
  Transmission Date: 20190711
  Serious: No
  Sender: FDA-Public Use
  Company Number: US-PFIZER INC-2019271587

PATIENT
  Age: 57 Year
  Sex: Female

DRUGS (2)
  1. IBRANCE [Suspect]
     Active Substance: PALBOCICLIB
     Indication: BREAST CANCER METASTATIC
     Dosage: 125 MG, UNK
     Dates: start: 20161213
  2. XGEVA [Concomitant]
     Active Substance: DENOSUMAB

REACTIONS (9)
  - Decreased appetite [Unknown]
  - Fatigue [Unknown]
  - White blood cell count decreased [Unknown]
  - Anaemia [Unknown]
  - Feeling cold [Unknown]
  - Malaise [Unknown]
  - Taste disorder [Unknown]
  - Disability [Unknown]
  - Ill-defined disorder [Unknown]
